FAERS Safety Report 8410893-9 (Version None)
Quarter: 2012Q2

REPORT INFORMATION
  Report Type: 
  Country: None (occurrence: None)
  Receive Date: 20120605
  Receipt Date: 20120530
  Transmission Date: 20120825
  Serious: Yes (Other)
  Sender: FDA-Public Use
  Company Number: PHHY2012PL046607

PATIENT
  Age: 32 Year
  Sex: Female

DRUGS (9)
  1. ISOSORBIDE MONONITRATE [Suspect]
     Dosage: 20 MG, BID
  2. DIHYDRALAZINE [Suspect]
     Dosage: 25 MG, TID
  3. BETAMETHASONE [Suspect]
  4. ENALAPRIL MALEATE [Suspect]
     Dosage: 2.5 MG, QD
  5. SPIRONOLACTONE [Suspect]
     Dosage: 12.5 MG/DAY
  6. METOPROLOL TARTRATE [Suspect]
     Dosage: 50-75 MG/DAY
  7. ENALAPRIL MALEATE [Suspect]
     Dosage: 5 MG, BID
  8. FUROSEMIDE [Suspect]
     Dosage: 40 MG
  9. DIGITALIS [Suspect]
     Dosage: 0.1 MG/DAY

REACTIONS (5)
  - MATERNAL EXPOSURE DURING PREGNANCY [None]
  - CARDIAC FAILURE [None]
  - ATRIOVENTRICULAR BLOCK [None]
  - VENTRICULAR TACHYCARDIA [None]
  - PREMATURE DELIVERY [None]
